FAERS Safety Report 7962598-6 (Version None)
Quarter: 2011Q4

REPORT INFORMATION
  Report Type: 
  Country: None (occurrence: None)
  Receive Date: 20111207
  Receipt Date: 20111206
  Transmission Date: 20120403
  Serious: Yes (Death, Other)
  Sender: FDA-Public Use
  Company Number: VE-PFIZER INC-2011285425

PATIENT
  Age: 86 Year
  Sex: Female

DRUGS (1)
  1. ZOLOFT [Suspect]
     Indication: DEPRESSION
     Dosage: 50 MG, 1X/DAY
     Route: 048
     Dates: start: 20070101

REACTIONS (3)
  - RESPIRATORY ARREST [None]
  - CONVULSION [None]
  - URINARY TRACT INFECTION [None]
